FAERS Safety Report 13702778 (Version 2)
Quarter: 2021Q1

REPORT INFORMATION
  Report Type: Spontaneous
  Country: IT (occurrence: IT)
  Receive Date: 20170629
  Receipt Date: 20210328
  Transmission Date: 20210419
  Serious: Yes (Death)
  Sender: FDA-Public Use
  Company Number: IT-TEVA-780315ACC

PATIENT
  Age: 28 Year
  Sex: Male

DRUGS (1)
  1. MOXIFLOXACINA [Suspect]
     Active Substance: MOXIFLOXACIN HYDROCHLORIDE
     Indication: PHARYNGITIS
     Dates: start: 20160321

REACTIONS (4)
  - Anaphylactic shock [Fatal]
  - Malaise [Fatal]
  - Cardiac arrest [Fatal]
  - Choking [Fatal]

NARRATIVE: CASE EVENT DATE: 20160321
